FAERS Safety Report 4820572-2 (Version None)
Quarter: 2005Q4

REPORT INFORMATION
  Report Type: 
  Country: None (occurrence: None)
  Receive Date: 20051104
  Receipt Date: 20051024
  Transmission Date: 20060501
  Serious: Yes (Other)
  Sender: FDA-Public Use
  Company Number: 2005GB02060

PATIENT
  Age: 35 Year
  Weight: 82 kg

DRUGS (5)
  1. SEROQUEL [Suspect]
     Indication: AGITATION
     Route: 048
     Dates: start: 20050903, end: 20050908
  2. SEROQUEL [Suspect]
     Indication: PSYCHOTIC DISORDER
     Route: 048
     Dates: start: 20050903, end: 20050908
  3. TEGRETOL [Concomitant]
     Indication: TEMPORAL LOBE EPILEPSY
     Route: 048
  4. EPILIM [Concomitant]
     Indication: TEMPORAL LOBE EPILEPSY
     Dosage: 500 MG EVERY MORNING AND 1000 MG EVERY EVENING
     Route: 048
  5. DIAZEPAM [Concomitant]
     Indication: TEMPORAL LOBE EPILEPSY
     Route: 048
     Dates: start: 20050801

REACTIONS (7)
  - AGITATION [None]
  - CHILLS [None]
  - CONFUSIONAL STATE [None]
  - HEADACHE [None]
  - HYPERHIDROSIS [None]
  - MYOCLONUS [None]
  - SEROTONIN SYNDROME [None]
